FAERS Safety Report 5995870-X (Version None)
Quarter: 2008Q4

REPORT INFORMATION
  Report Type: 
  Country: None (occurrence: None)
  Receive Date: 20081212
  Receipt Date: 20081202
  Transmission Date: 20090506
  Serious: Yes (Hospitalization)
  Sender: FDA-Public Use
  Company Number: DK-B.I. PHARMACEUTICALS,INC./RIDGEFIELD-2008-SW-00318DB

PATIENT
  Sex: Female
  Weight: 66 kg

DRUGS (5)
  1. SIFROL TAB 0.088 MG [Suspect]
     Indication: RESTLESS LEGS SYNDROME
     Dosage: .176MG
     Dates: start: 20070821, end: 20080918
  2. NEXIUM [Concomitant]
     Indication: GASTRIC ULCER
     Dosage: 40MG
     Route: 048
     Dates: start: 20061203, end: 20080929
  3. MANDOLGIN [Concomitant]
     Indication: PAIN
     Dosage: 200MG
     Route: 048
     Dates: start: 20070514, end: 20081117
  4. GABAPENTIN [Concomitant]
     Indication: PAIN
     Dosage: 900MG
     Route: 048
     Dates: start: 20081021, end: 20081117
  5. PANODIL RETARD [Concomitant]
     Indication: PAIN
     Dosage: 3-4 TABLETS X 2 DAILY
     Route: 048
     Dates: start: 20060831, end: 20080929

REACTIONS (1)
  - PYREXIA [None]
